FAERS Safety Report 6893978-8 (Version None)
Quarter: 2010Q3

REPORT INFORMATION
  Report Type: 
  Country: None (occurrence: None)
  Receive Date: 20100802
  Receipt Date: 20100726
  Transmission Date: 20110219
  Serious: Yes (Hospitalization)
  Sender: FDA-Public Use
  Company Number: 2009BI037230

PATIENT
  Age: 49 Year
  Sex: Female

DRUGS (1)
  1. TYSABRI [Suspect]
     Indication: MULTIPLE SCLEROSIS
     Route: 042
     Dates: start: 20080208

REACTIONS (5)
  - BOWEL MOVEMENT IRREGULARITY [None]
  - MENORRHAGIA [None]
  - NASOPHARYNGITIS [None]
  - URINARY INCONTINENCE [None]
  - WEIGHT INCREASED [None]
